FAERS Safety Report 15991212 (Version 1)
Quarter: 2019Q1

REPORT INFORMATION
  Report Type: Spontaneous
  Country: US (occurrence: US)
  Receive Date: 20190129
  Receipt Date: 20190129
  Transmission Date: 20190418
  Serious: Yes (Life-Threatening)
  Sender: FDA-Public Use
  Company Number: None

PATIENT
  Age: 37 Year
  Sex: Female
  Weight: 123.75 kg

DRUGS (4)
  1. PHENTERMINE. [Suspect]
     Active Substance: PHENTERMINE
  2. JOLESSA [Concomitant]
     Active Substance: ETHINYL ESTRADIOL\LEVONORGESTREL
  3. CHORIONIC GONADOTROPHIN [Suspect]
     Active Substance: CHORIOGONADOTROPIN ALFA
     Indication: WEIGHT DECREASED
     Dates: start: 20110101, end: 20120101
  4. MULTIVITAMIN WITH IRON [Concomitant]
     Active Substance: IRON\VITAMINS

REACTIONS (12)
  - Malaise [None]
  - Skin disorder [None]
  - Amenorrhoea [None]
  - Onychoclasis [None]
  - Alopecia [None]
  - Hormone level abnormal [None]
  - Asthenia [None]
  - Anaemia [None]
  - Weight increased [None]
  - Dizziness [None]
  - Judgement impaired [None]
  - Fatigue [None]

NARRATIVE: CASE EVENT DATE: 20120101
